FAERS Safety Report 5476684-6 (Version None)
Quarter: 2007Q4

REPORT INFORMATION
  Report Type: 
  Country: None (occurrence: None)
  Receive Date: 20071004
  Receipt Date: 20070925
  Transmission Date: 20080405
  Serious: Yes (Other)
  Sender: FDA-Public Use
  Company Number: US-BAYER-200713121BCC

PATIENT
  Sex: Male

DRUGS (2)
  1. PHILLIPS LIQUID GELS [Suspect]
     Indication: CONSTIPATION
     Dosage: TOTAL DAILY DOSE: 100 MG  UNIT DOSE: 100 MG
     Route: 048
     Dates: start: 20070917
  2. UNKNOWN GLAUCOMA MEDICATION [Concomitant]

REACTIONS (1)
  - BLINDNESS [None]
